FAERS Safety Report 8880756 (Version 2)
Quarter: 2013Q2

REPORT INFORMATION
  Report Type: Spontaneous
  Country: US (occurrence: US)
  Receive Date: 20121101
  Receipt Date: 20130410
  Transmission Date: 20140414
  Serious: Yes (Hospitalization, Other)
  Sender: FDA-Public Use
  Company Number: US-BAYER-2012-113069

PATIENT
  Age: 23 Year
  Sex: Female
  Weight: 99.77 kg

DRUGS (7)
  1. YAZ [Suspect]
     Indication: PREMENSTRUAL SYNDROME
     Dosage: UNK
     Dates: start: 2006, end: 2010
  2. ALBUTEROL [Concomitant]
  3. ZOLOFT [Concomitant]
     Dosage: 500 MG, DAILY
     Route: 048
  4. HYDROCODONE [Concomitant]
     Indication: PAIN
     Dosage: 7.5 MG, PRN
     Route: 048
  5. PEPCID [Concomitant]
     Dosage: 20 MG, UNK
     Route: 048
  6. VENTOLIN INHALER [Concomitant]
     Indication: DYSPNOEA
     Dosage: UNK UNK, PRN
  7. VICODIN [Concomitant]

REACTIONS (8)
  - Gallbladder disorder [None]
  - Cholecystitis chronic [None]
  - Injury [None]
  - Pain [None]
  - Emotional distress [None]
  - Anxiety [None]
  - Psychological trauma [None]
  - Off label use [None]
